FAERS Safety Report 17169695 (Version 2)
Quarter: 2022Q1

REPORT INFORMATION
  Report Type: Spontaneous
  Country: US (occurrence: US)
  Receive Date: 20191218
  Receipt Date: 20220209
  Transmission Date: 20220424
  Serious: No
  Sender: FDA-Public Use
  Company Number: US-JNJFOC-20191226835

PATIENT
  Sex: Male

DRUGS (8)
  1. RISPERDAL [Suspect]
     Active Substance: RISPERIDONE
     Indication: Aggression
     Route: 048
     Dates: start: 20070622
  2. RISPERDAL [Suspect]
     Active Substance: RISPERIDONE
     Indication: Impulsive behaviour
     Route: 048
     Dates: start: 20070824
  3. RISPERDAL [Suspect]
     Active Substance: RISPERIDONE
     Indication: Stress
     Route: 048
     Dates: start: 20071005
  4. RISPERDAL [Suspect]
     Active Substance: RISPERIDONE
     Indication: Sleep disorder therapy
     Route: 048
     Dates: end: 20100728
  5. RISPERDAL [Suspect]
     Active Substance: RISPERIDONE
     Dosage: AT NIGHT TO ASSIST WITH SLEEP
     Route: 048
     Dates: start: 20100811, end: 20110323
  6. RISPERDAL [Suspect]
     Active Substance: RISPERIDONE
     Route: 048
     Dates: start: 20110412
  7. RISPERDAL [Suspect]
     Active Substance: RISPERIDONE
     Route: 048
     Dates: start: 20120711
  8. RISPERDAL [Suspect]
     Active Substance: RISPERIDONE
     Route: 048
     Dates: end: 20140108

REACTIONS (2)
  - Gynaecomastia [Unknown]
  - Emotional disorder [Unknown]
